FAERS Safety Report 8459475 (Version 2)
Quarter: 2016Q1

REPORT INFORMATION
  Report Type: Spontaneous
  Country: US (occurrence: US)
  Receive Date: 20120314
  Receipt Date: 20160128
  Transmission Date: 20160526
  Serious: Yes (Hospitalization, Other)
  Sender: FDA-Public Use
  Company Number: US-ASTRAZENECA-2011SE28098

PATIENT
  Age: 49 Year
  Sex: Female
  Weight: 72.6 kg

DRUGS (10)
  1. TOPROL XL [Suspect]
     Active Substance: METOPROLOL SUCCINATE
     Indication: HYPERTENSION
     Route: 048
  2. SPIRONOLACTONE. [Concomitant]
     Active Substance: SPIRONOLACTONE
     Indication: HYPERTENSION
     Route: 048
     Dates: start: 2013
  3. TOPROL XL [Suspect]
     Active Substance: METOPROLOL SUCCINATE
     Indication: HYPERTENSION
     Route: 048
     Dates: start: 2004, end: 2014
  4. TOPROL XL [Suspect]
     Active Substance: METOPROLOL SUCCINATE
     Indication: HYPERTENSION
     Dosage: GENERIC, 100 MG, DAILY
     Route: 048
     Dates: start: 2010, end: 2011
  5. VITAMINS NOS [Concomitant]
     Active Substance: VITAMINS
     Route: 048
  6. FISH OIL [Concomitant]
     Active Substance: FISH OIL
     Route: 048
     Dates: start: 2013
  7. TOPROL XL [Suspect]
     Active Substance: METOPROLOL SUCCINATE
     Indication: HYPERTENSION
     Route: 048
     Dates: start: 2011
  8. ASPIRIN. [Concomitant]
     Active Substance: ASPIRIN
     Indication: CEREBROVASCULAR ACCIDENT
     Route: 048
     Dates: start: 2013
  9. TYLENOL [Concomitant]
     Active Substance: ACETAMINOPHEN
     Dosage: PRN
  10. CRESTOR [Suspect]
     Active Substance: ROSUVASTATIN CALCIUM
     Indication: BLOOD CHOLESTEROL ABNORMAL
     Route: 048
     Dates: start: 2014

REACTIONS (7)
  - Palpitations [Recovered/Resolved]
  - Nervous system disorder [Unknown]
  - Muscle twitching [Unknown]
  - Pain in extremity [Unknown]
  - Gait disturbance [Unknown]
  - Impaired work ability [Unknown]
  - Cerebrovascular accident [Unknown]

NARRATIVE: CASE EVENT DATE: 2010
